FAERS Safety Report 4687035-9 (Version None)
Quarter: 2005Q2

REPORT INFORMATION
  Report Type: 
  Country: None (occurrence: None)
  Receive Date: 20050607
  Receipt Date: 20050324
  Transmission Date: 20051028
  Serious: Yes (Hospitalization)
  Sender: FDA-Public Use
  Company Number: B01200500656

PATIENT
  Age: 74 Year
  Sex: Female

DRUGS (13)
  1. CLOPIDOGREL BISULFATE [Suspect]
     Indication: ISCHAEMIA
     Dosage: 75 MG QD, ORAL
     Route: 048
     Dates: start: 20030424, end: 20040427
  2. CLOPIDOGREL BISULFATE [Suspect]
     Indication: PROPHYLAXIS
     Dosage: 75 MG QD, ORAL
     Route: 048
     Dates: start: 20030424, end: 20040427
  3. ACETYLSALICYLIC ACID SRT [Concomitant]
  4. METOPROLOL [Concomitant]
  5. NITRATES (GLYCERYL TRINITRATE) [Concomitant]
  6. SIMVASTATIN [Concomitant]
  7. OMEPRAZOLE [Concomitant]
  8. AMILORIDE HCL [Concomitant]
  9. ISOSORBIDE MONONITRATE [Concomitant]
  10. PENTOXIPHILLIN (PENTOXIFLYLLINE) [Concomitant]
  11. TICLOPIDINE HCL [Concomitant]
  12. ATORVASTATIN CALCIUM [Concomitant]
  13. HYDROCHLOROTHIAZIDE [Concomitant]

REACTIONS (3)
  - ECCHYMOSIS [None]
  - LARYNGITIS [None]
  - LUNG ADENOCARCINOMA [None]
